FAERS Safety Report 8169993-3 (Version None)
Quarter: 2012Q1

REPORT INFORMATION
  Report Type: 
  Country: None (occurrence: None)
  Receive Date: 20120228
  Receipt Date: 20120215
  Transmission Date: 20120608
  Serious: Yes (Hospitalization)
  Sender: FDA-Public Use
  Company Number: FR-ELI_LILLY_AND_COMPANY-FR201112005407

PATIENT
  Age: 12 Year
  Sex: Female

DRUGS (1)
  1. HUMALOG [Suspect]
     Indication: TYPE 1 DIABETES MELLITUS
     Dosage: UNK UNK, UNKNOWN
     Route: 058

REACTIONS (6)
  - MALAISE [None]
  - DEVICE COLOUR ISSUE [None]
  - VOMITING [None]
  - NAUSEA [None]
  - DIZZINESS [None]
  - TINNITUS [None]
